FAERS Safety Report 14193967 (Version 2)
Quarter: 2017Q4

REPORT INFORMATION
  Report Type: Spontaneous
  Country: JP (occurrence: JP)
  Receive Date: 20171116
  Receipt Date: 20171208
  Transmission Date: 20180321
  Serious: Yes (Other)
  Sender: FDA-Public Use
  Company Number: JP-CIPLA LTD.-2017JP20169

PATIENT

DRUGS (5)
  1. FOLINIC ACID [Suspect]
     Active Substance: LEUCOVORIN
     Indication: COLON CANCER STAGE IV
     Dosage: 57 CYCLES, BI-WEEKLY, FIRST-LINE TREATMENT FOLFOX4
     Route: 065
  2. OXALIPLATIN. [Suspect]
     Active Substance: OXALIPLATIN
     Dosage: 55 CYCLES, BI-WEEKLY ON REDUCED DOSE, FIRST-LINE TREATMENT FOLFOX4
     Route: 065
  3. BEVACIZUMAB. [Suspect]
     Active Substance: BEVACIZUMAB
     Indication: COLON CANCER STAGE IV
     Dosage: 2 CYCLES, BI-WEEKLY, FIRST-LINE TREATMENT FOLFOX4
     Route: 065
  4. OXALIPLATIN. [Suspect]
     Active Substance: OXALIPLATIN
     Indication: COLON CANCER STAGE IV
     Dosage: 2 CYCLES, BI-WEEKLY, FIRST-LINE TREATMENT FOLFOX4
     Route: 065
  5. FLUOROURACIL. [Suspect]
     Active Substance: FLUOROURACIL
     Indication: COLON CANCER STAGE IV
     Dosage: 57 CYCLES, BI-WEEKLY, FIRST-LINE TREATMENT FOLFOX4
     Route: 065

REACTIONS (4)
  - Neutropenia [Unknown]
  - Hypertension [Unknown]
  - Metastases to liver [Unknown]
  - Large intestinal obstruction [Recovered/Resolved]
